FAERS Safety Report 6370955-7 (Version None)
Quarter: 2009Q3

REPORT INFORMATION
  Report Type: 
  Country: None (occurrence: None)
  Receive Date: 20090923
  Receipt Date: 20080205
  Transmission Date: 20100115
  Serious: Yes (Hospitalization)
  Sender: FDA-Public Use
  Company Number: US-ASTRAZENECA-2006UW23016

PATIENT
  Age: 46 Year
  Sex: Male
  Weight: 83.9 kg

DRUGS (8)
  1. SEROQUEL [Suspect]
     Indication: DEPRESSION
     Route: 048
     Dates: start: 20050201
  2. SEROQUEL [Suspect]
     Indication: ANXIETY
     Route: 048
     Dates: start: 20050201
  3. SEROQUEL [Suspect]
     Route: 048
     Dates: start: 20050510
  4. SEROQUEL [Suspect]
     Route: 048
     Dates: start: 20050510
  5. BUPROPION HCL [Concomitant]
     Route: 048
     Dates: start: 20050707
  6. DIVALPROEX EXTENDED-RELEASE [Concomitant]
     Route: 048
     Dates: start: 20050707
  7. MESALAMINE [Concomitant]
     Dosage: 2400 - 4000 MG
     Route: 048
     Dates: start: 20030903
  8. PREDNISONE [Concomitant]
     Dosage: 30 - 60 MG
     Route: 048
     Dates: start: 20030825

REACTIONS (2)
  - DIABETES MELLITUS [None]
  - TYPE 2 DIABETES MELLITUS [None]
